FAERS Safety Report 8381421-1 (Version None)
Quarter: 2012Q2

REPORT INFORMATION
  Report Type: 
  Country: None (occurrence: None)
  Receive Date: 20120523
  Receipt Date: 20120521
  Transmission Date: 20120825
  Serious: Yes (Hospitalization)
  Sender: FDA-Public Use
  Company Number: IT-ROCHE-1071096

PATIENT
  Sex: Male

DRUGS (7)
  1. AVASTIN [Suspect]
     Indication: RECTAL CANCER
     Route: 042
     Dates: start: 20120313, end: 20120328
  2. PREFOLIC [Concomitant]
     Route: 065
  3. DECADRON [Concomitant]
     Route: 065
  4. TRIMETON [Concomitant]
     Route: 065
  5. FLUOROURACIL [Suspect]
     Indication: RECTAL CANCER
     Route: 042
     Dates: start: 20111026, end: 20120328
  6. ZOFRAN [Concomitant]
     Route: 065
  7. ELOXATIN [Suspect]
     Indication: RECTAL CANCER
     Route: 042
     Dates: start: 20111026, end: 20120328

REACTIONS (5)
  - CHILLS [None]
  - ARTHRALGIA [None]
  - PNEUMONIA [None]
  - HYPERPYREXIA [None]
  - COUGH [None]
